FAERS Safety Report 4826262-4 (Version None)
Quarter: 2005Q4

REPORT INFORMATION
  Report Type: 
  Country: None (occurrence: None)
  Receive Date: 20051109
  Receipt Date: 20051109
  Transmission Date: 20060501
  Serious: Yes (Life-Threatening, Hospitalization)
  Sender: FDA-Public Use
  Company Number: None

PATIENT
  Sex: Male

DRUGS (1)
  1. ATGAM [Suspect]
     Dosage: 3000 MG    DAILY   IV DRIP
     Route: 041
     Dates: start: 20050706, end: 20050706

REACTIONS (5)
  - CHILLS [None]
  - HYPERGLYCAEMIA [None]
  - HYPERTENSION [None]
  - HYPERVENTILATION [None]
  - RENAL FAILURE ACUTE [None]
